FAERS Safety Report 9406029 (Version 1)
Quarter: 2013Q3

REPORT INFORMATION
  Report Type: Spontaneous
  Country: US (occurrence: US)
  Receive Date: 20130717
  Receipt Date: 20130717
  Transmission Date: 20140515
  Serious: Yes (Other)
  Sender: FDA-Public Use
  Company Number: US-TEVA-419366USA

PATIENT
  Age: 55 Year
  Sex: Male

DRUGS (2)
  1. BENAZEPRIL [Suspect]
     Indication: HYPERTENSION
  2. EXFORGE [Concomitant]
     Indication: HYPERTENSION

REACTIONS (4)
  - Road traffic accident [Unknown]
  - Concussion [Unknown]
  - Back injury [Unknown]
  - Tension headache [Unknown]
